FAERS Safety Report 24306932 (Version 1)
Quarter: 2024Q3

REPORT INFORMATION
  Report Type: Spontaneous
  Country: FR (occurrence: FR)
  Receive Date: 20240911
  Receipt Date: 20240911
  Transmission Date: 20241016
  Serious: Yes (Death)
  Sender: UCB
  Company Number: None

PATIENT
  Age: 26 Year
  Sex: Male

DRUGS (3)
  1. VIMPAT [Suspect]
     Active Substance: LACOSAMIDE
     Indication: Epilepsy
     Dosage: 35 MILLILITER
     Route: 048
     Dates: start: 20230901
  2. RISPERIDONE [Suspect]
     Active Substance: RISPERIDONE
     Indication: Autism spectrum disorder
     Dosage: 3 DOSAGE FORM
     Route: 048
  3. EVEROLIMUS [Suspect]
     Active Substance: EVEROLIMUS
     Indication: Astrocytoma surgery
     Dosage: 1 DOSAGE FORM
     Route: 048

REACTIONS (1)
  - Status epilepticus [Fatal]

NARRATIVE: CASE EVENT DATE: 20240701
